FAERS Safety Report 8779419 (Version 4)
Quarter: 2012Q4

REPORT INFORMATION
  Report Type: 
  Country: JP (occurrence: JP)
  Receive Date: 20120912
  Receipt Date: 20121101
  Transmission Date: 20130627
  Serious: Yes (Other)
  Sender: FDA-Public Use
  Company Number: JP-PFIZER INC-2012218214

PATIENT
  Age: 33 Year
  Sex: Female

DRUGS (12)
  1. ZITHROMAC SR [Suspect]
     Indication: MYCOPLASMA INFECTION
     Dosage: 2 g, 1x/day
     Route: 048
     Dates: start: 20120220, end: 20120220
  2. ZITHROMAC SR [Suspect]
     Dosage: 2 g, 1x/day
     Route: 048
     Dates: start: 20120225, end: 20120225
  3. VICCILLIN [Concomitant]
     Indication: BRONCHITIS
     Dosage: 1 g, 4x/day
     Route: 042
     Dates: start: 20120220, end: 20120224
  4. UTERON [Concomitant]
     Indication: THREATENED PREMATURE LABOUR
     Dosage: 72 mg daily continuous
     Route: 042
     Dates: start: 20120201, end: 20120215
  5. UTERON [Concomitant]
     Dosage: 216 mg continous
     Route: 042
     Dates: start: 20120215, end: 20120221
  6. UTERON [Concomitant]
     Dosage: 288 mg continuous
     Route: 042
     Dates: start: 20120221, end: 20120320
  7. MAG-LAX [Concomitant]
     Indication: CONSTIPATION
     Dosage: 0.5 g, 3x/day
     Route: 048
     Dates: start: 20120202, end: 20120305
  8. ASTOMIN [Concomitant]
     Indication: BRONCHITIS
     Dosage: 10 mg, 3x/day
     Route: 048
     Dates: start: 20120227, end: 20120305
  9. MUCODYNE [Concomitant]
     Indication: BRONCHITIS
     Dosage: 250 mg, 3x/day
     Route: 048
     Dates: start: 20120227, end: 20120305
  10. PACETCOOL [Concomitant]
     Indication: BRONCHITIS
     Dosage: 1 g, 3x/day
     Route: 042
     Dates: start: 20120227, end: 20120302
  11. SULBACILLIN [Concomitant]
     Indication: PNEUMONIA
     Dosage: 3 g, 2x/day
     Route: 042
     Dates: start: 20120308, end: 20120314
  12. RELENZA [Concomitant]
     Indication: INFLUENZA A VIRUS INFECTION
     Dosage: UNK; twice daily
     Route: 055
     Dates: start: 20120202, end: 20120206

REACTIONS (1)
  - Eosinophilic pneumonia [Recovered/Resolved]
